FAERS Safety Report 9888462 (Version 1)
Quarter: 2014Q1

REPORT INFORMATION
  Report Type: Spontaneous
  Country: FR (occurrence: FR)
  Receive Date: 20140211
  Receipt Date: 20140211
  Transmission Date: 20141002
  Serious: Yes (Hospitalization)
  Sender: FDA-Public Use
  Company Number: FR-ABBVIE-14P-056-1198693-00

PATIENT
  Age: 49 Year
  Sex: Male

DRUGS (5)
  1. NORVIR [Suspect]
     Indication: HIV INFECTION
     Dates: start: 20131120, end: 20140106
  2. ISENTRESS [Suspect]
     Indication: HIV INFECTION
     Route: 048
     Dates: start: 20131120, end: 20140106
  3. PREZISTA [Suspect]
     Indication: HIV INFECTION
     Route: 048
     Dates: start: 20131120, end: 20140106
  4. BACTRIM [Concomitant]
     Indication: PRODUCT USED FOR UNKNOWN INDICATION
  5. AZADOSE [Concomitant]
     Indication: PRODUCT USED FOR UNKNOWN INDICATION

REACTIONS (12)
  - Eosinophilia [Recovered/Resolved]
  - Prurigo [Recovered/Resolved]
  - Pruritus [Recovered/Resolved]
  - Lymphadenopathy [Unknown]
  - Cholestasis [Unknown]
  - Lymphadenopathy [Unknown]
  - Exfoliative rash [Recovered/Resolved]
  - Mucous membrane disorder [Recovered/Resolved]
  - Parasite blood test positive [Unknown]
  - General physical health deterioration [Unknown]
  - Weight decreased [Unknown]
  - Diarrhoea [Unknown]
